FAERS Safety Report 17076259 (Version 4)
Quarter: 2021Q1

REPORT INFORMATION
  Report Type: Spontaneous
  Country: US (occurrence: US)
  Receive Date: 20191126
  Receipt Date: 20210209
  Transmission Date: 20210419
  Serious: No
  Sender: FDA-Public Use
  Company Number: US-EMD SERONO-9124728

PATIENT
  Age: 70 Year
  Sex: Male

DRUGS (4)
  1. REBIF [Suspect]
     Active Substance: INTERFERON BETA-1A
     Indication: MULTIPLE SCLEROSIS
     Route: 058
     Dates: start: 1998
  2. REBIF [Suspect]
     Active Substance: INTERFERON BETA-1A
     Route: 058
     Dates: start: 20081106
  3. REBIF [Suspect]
     Active Substance: INTERFERON BETA-1A
     Dosage: PRE?FILLED SYRINGE
     Route: 058
     Dates: start: 201909, end: 2019
  4. REBIF [Suspect]
     Active Substance: INTERFERON BETA-1A
     Dosage: RESTARTED ON AN UNKNOWN DATE

REACTIONS (11)
  - Injection site erythema [Recovered/Resolved]
  - Pain [Unknown]
  - Nerve injury [Unknown]
  - Injection site irritation [Unknown]
  - Gait disturbance [Recovering/Resolving]
  - Lipoma [Unknown]
  - Injection site swelling [Recovered/Resolved]
  - Injection site pain [Not Recovered/Not Resolved]
  - Skin hypertrophy [Not Recovered/Not Resolved]
  - Injection site induration [Unknown]
  - Wrong technique in product usage process [Unknown]

NARRATIVE: CASE EVENT DATE: 2019
